FAERS Safety Report 6866592-8 (Version None)
Quarter: 2010Q3

REPORT INFORMATION
  Report Type: 
  Country: None (occurrence: None)
  Receive Date: 20100722
  Receipt Date: 20100716
  Transmission Date: 20110219
  Serious: Yes (Other)
  Sender: FDA-Public Use
  Company Number: IT-EISAI INC.-E3810-03875-SPO-IT

PATIENT
  Sex: Female

DRUGS (1)
  1. PARIET (RABEPRAZOLE) [Suspect]
     Route: 048
     Dates: start: 20090909, end: 20091002

REACTIONS (2)
  - MUSCULAR WEAKNESS [None]
  - PAIN IN EXTREMITY [None]
